FAERS Safety Report 20759654 (Version 1)
Quarter: 2022Q2

REPORT INFORMATION
  Report Type: Spontaneous
  Country: US (occurrence: US)
  Receive Date: 20220427
  Receipt Date: 20220427
  Transmission Date: 20220721
  Serious: No
  Sender: FDA-Public Use
  Company Number: US-BioHaven Pharmaceuticals-2021BHV003073

PATIENT
  Age: 33 Year
  Sex: Female

DRUGS (1)
  1. NURTEC ODT [Suspect]
     Active Substance: RIMEGEPANT SULFATE
     Indication: Product used for unknown indication
     Dosage: STARTED TAKING IT AROUND 17-NOV-2021 AND TOOK IT FOR 2 WEEKS BUT THEN SHE DISCONTINUED THE PRODUCT.
     Route: 048
     Dates: start: 20211117, end: 202111

REACTIONS (2)
  - Drug ineffective [Unknown]
  - Abdominal discomfort [Unknown]
